FAERS Safety Report 18993962 (Version 2)
Quarter: 2021Q1

REPORT INFORMATION
  Report Type: Spontaneous
  Country: JP (occurrence: JP)
  Receive Date: 20210311
  Receipt Date: 20210330
  Transmission Date: 20210420
  Serious: Yes (Life-Threatening, Hospitalization, Other)
  Sender: FDA-Public Use
  Company Number: JP-009507513-2102JPN000996J

PATIENT
  Age: 75 Year
  Sex: Male
  Weight: 65 kg

DRUGS (13)
  1. GASCON [Concomitant]
     Active Substance: DIMETHICONE
     Dosage: 240 MILLIGRAM, AFTER EACH MEAL
     Route: 048
  2. LOXONIN [Concomitant]
     Active Substance: LOXOPROFEN SODIUM
     Dosage: APPLY TO A WAIST
     Route: 051
  3. KEYTRUDA [Suspect]
     Active Substance: PEMBROLIZUMAB
     Indication: URETERIC CANCER
     Dosage: UNK
     Route: 041
     Dates: start: 201904, end: 20191016
  4. VOGLIBOSE [Concomitant]
     Active Substance: VOGLIBOSE
     Dosage: 0.9 MILLIGRAM, IMMEDIATELY BEFORE EACH MEAL
     Route: 048
  5. SYMBICORT [Concomitant]
     Active Substance: BUDESONIDE\FORMOTEROL FUMARATE DIHYDRATE
     Dosage: INHALE TWICE DAILY, 2 INHALATIONS IN ONE DOSE
     Route: 051
  6. PACLITAXEL. [Concomitant]
     Active Substance: PACLITAXEL
     Indication: URETERIC CANCER
     Dosage: UNK
     Route: 065
     Dates: start: 20191210
  7. TAMSULOSIN HYDROCHLORIDE OD [Concomitant]
     Active Substance: TAMSULOSIN HYDROCHLORIDE
     Dosage: 0.2 MILLIGRAM, AFTER BREAKFAST
     Route: 048
  8. NIFEDIPINE CR [Concomitant]
     Active Substance: NIFEDIPINE
     Dosage: 40 MILLIGRAM, AFTER BREAKFAST
     Route: 048
  9. TRIAZOLAM. [Concomitant]
     Active Substance: TRIAZOLAM
     Dosage: 0.25 MILLIGRAM, BEFORE BEDTIME AS REQUIRED
     Route: 048
  10. CALONAL [Concomitant]
     Active Substance: ACETAMINOPHEN
     Dosage: 3000 MILLIGRAM, AFTER EACH MEAL
     Route: 048
  11. URINORM [Concomitant]
     Active Substance: BENZBROMARONE
     Dosage: 50 MILLIGRAM, AFTER BREAKFAST AND DINNER
     Route: 048
  12. CARBOCISTEINE [Concomitant]
     Active Substance: CARBOCYSTEINE
     Dosage: 1500 MILLIGRAM, AFTER EACH MEAL
     Route: 048
  13. QUENMET [Concomitant]
     Dosage: 3 GRAM, AFTER EACH MEAL
     Route: 048

REACTIONS (5)
  - Renal impairment [Unknown]
  - Hyperkalaemia [Unknown]
  - Diabetic ketoacidosis [Unknown]
  - Pancreatic enzymes increased [Unknown]
  - Fulminant type 1 diabetes mellitus [Unknown]

NARRATIVE: CASE EVENT DATE: 201912
